FAERS Safety Report 10069666 (Version 3)
Quarter: 2014Q2

REPORT INFORMATION
  Report Type: Spontaneous
  Country: JP (occurrence: JP)
  Receive Date: 20140410
  Receipt Date: 20140422
  Transmission Date: 20141212
  Serious: Yes (Other)
  Sender: FDA-Public Use
  Company Number: JP-BRISTOL-MYERS SQUIBB COMPANY-20337986

PATIENT
  Age: 80 Year
  Sex: Male
  Weight: 51 kg

DRUGS (12)
  1. ELIQUIS [Suspect]
     Indication: ATRIAL FIBRILLATION
     Route: 048
     Dates: start: 20140214
  2. BLOPRESS [Suspect]
     Indication: HYPERTENSION
     Route: 048
     Dates: start: 20100803, end: 20140218
  3. SULFAMETHOXAZOLE + TRIMETHOPRIM [Suspect]
     Dosage: 1 DF: 1 TABLET
     Route: 048
     Dates: start: 20140124
  4. LANIRAPID [Concomitant]
     Indication: CARDIAC FAILURE
     Dates: start: 20100803
  5. NEXIUM [Concomitant]
     Indication: GASTROOESOPHAGEAL REFLUX DISEASE
     Route: 048
     Dates: start: 20120523
  6. EPADEL [Concomitant]
     Indication: HYPERLIPIDAEMIA
     Route: 048
     Dates: start: 20100813
  7. MAINTATE [Concomitant]
     Indication: CARDIAC FAILURE
     Route: 048
     Dates: start: 20130518
  8. WARFARIN POTASSIUM [Concomitant]
     Indication: ATRIAL FIBRILLATION
     Route: 048
     Dates: start: 20050723, end: 20140204
  9. SUNRYTHM [Concomitant]
     Indication: ATRIAL FIBRILLATION
     Dosage: CAP
     Dates: start: 20050223
  10. PREDONINE [Concomitant]
     Indication: PULMONARY ALVEOLAR HAEMORRHAGE
     Dosage: 5 DF: 5 TAB UNIT NOS.?3 TAB/DAY?2 TAB/DAY AS OF 7APR14
     Route: 048
     Dates: start: 20140116
  11. BAKTAR [Concomitant]
     Dosage: 1 DF: 1 TAB UNIT NOS
     Route: 048
     Dates: start: 20140124
  12. BONALON [Concomitant]
     Indication: OSTEOPOROSIS PROPHYLAXIS
     Dosage: 1 DF: 1 TAB UNIT NOS
     Route: 048
     Dates: start: 20140124

REACTIONS (1)
  - Hyperkalaemia [Recovering/Resolving]
